FAERS Safety Report 9643934 (Version 1)
Quarter: 2013Q4

REPORT INFORMATION
  Report Type: Spontaneous
  Country: US (occurrence: US)
  Receive Date: 20131024
  Receipt Date: 20131024
  Transmission Date: 20140711
  Serious: Yes (Death)
  Sender: FDA-Public Use
  Company Number: US-BRISTOL-MYERS SQUIBB COMPANY-19554724

PATIENT
  Age: 55 Year
  Sex: Male
  Weight: 70.75 kg

DRUGS (2)
  1. ABILIFY [Suspect]
     Indication: BIPOLAR I DISORDER
  2. DEPAKOTE [Concomitant]

REACTIONS (1)
  - Death [Fatal]
